FAERS Safety Report 5871413-6 (Version None)
Quarter: 2008Q3

REPORT INFORMATION
  Report Type: 
  Country: None (occurrence: None)
  Receive Date: 20080905
  Receipt Date: 20080110
  Transmission Date: 20090109
  Serious: No
  Sender: FDA-Public Use
  Company Number: A0703402A

PATIENT
  Sex: Male

DRUGS (1)
  1. REQUIP [Suspect]
     Indication: PARKINSON'S DISEASE
     Route: 048

REACTIONS (1)
  - TREMOR [None]
